FAERS Safety Report 7674423-1 (Version None)
Quarter: 2011Q3

REPORT INFORMATION
  Report Type: 
  Country: None (occurrence: None)
  Receive Date: 20110810
  Receipt Date: 20110809
  Transmission Date: 20111222
  Serious: Yes (Other)
  Sender: FDA-Public Use
  Company Number: NL-PFIZER INC-2011131159

PATIENT
  Age: 52 Year
  Sex: Female
  Weight: 53 kg

DRUGS (2)
  1. VARENICLINE TARTRATE [Suspect]
     Indication: SMOKING CESSATION THERAPY
     Dosage: UNK
     Dates: start: 20110503, end: 20110616
  2. HYDROCHLOROTHIAZIDE [Concomitant]
     Dosage: 12.5 MG, 1X/DAY

REACTIONS (10)
  - DECREASED APPETITE [None]
  - CONSTIPATION [None]
  - OCULAR HYPERAEMIA [None]
  - VISION BLURRED [None]
  - DYSGEUSIA [None]
  - BLOOD PRESSURE INCREASED [None]
  - EYE PAIN [None]
  - DRY MOUTH [None]
  - CONJUNCTIVAL HAEMORRHAGE [None]
  - NAUSEA [None]
